FAERS Safety Report 4388815-X (Version None)
Quarter: 2004Q2

REPORT INFORMATION
  Report Type: 
  Country: None (occurrence: None)
  Receive Date: 20040624
  Receipt Date: 20040609
  Transmission Date: 20050107
  Serious: Yes (Other)
  Sender: FDA-Public Use
  Company Number: 199661

PATIENT
  Age: 36 Year
  Sex: Female
  Weight: 63.05 kg

DRUGS (3)
  1. AVONEX [Suspect]
     Indication: MULTIPLE SCLEROSIS
     Dosage: 30 MCG QW IM
     Route: 030
     Dates: start: 20000101, end: 20000101
  2. AVONEX [Suspect]
     Indication: MULTIPLE SCLEROSIS
     Dosage: 30 MCG QW IM
     Route: 030
     Dates: start: 20040401, end: 20040521
  3. PREMPHASE 14/14 [Concomitant]

REACTIONS (2)
  - AUTOIMMUNE HEPATITIS [None]
  - WEIGHT DECREASED [None]
